FAERS Safety Report 7764792-6 (Version None)
Quarter: 2011Q3

REPORT INFORMATION
  Report Type: 
  Country: None (occurrence: None)
  Receive Date: 20110921
  Receipt Date: 20110921
  Transmission Date: 20111222
  Serious: Yes (Death)
  Sender: FDA-Public Use
  Company Number: None

PATIENT
  Sex: Male

DRUGS (8)
  1. FISH OIL [Concomitant]
     Route: 048
  2. FLOMAX [Concomitant]
     Route: 048
  3. MULTUIVITAMIN [Concomitant]
     Route: 048
  4. CASODEX [Concomitant]
     Dosage: 50MG
     Route: 048
  5. EVEROLIMUS [Suspect]
     Dosage: 10MG
     Route: 048
  6. ORAMAGICRX- K+SORB-MALRODEX-ALOE-MANPOLY PRN MUCOUS MEMBRANE [Concomitant]
     Route: 048
  7. IBUPROFEN [Concomitant]
  8. UCD MOUTH WASH- ANTACIDM NYSTATIN, LIDOCAINE PRN MUCOUS MEMBRANE [Concomitant]
     Route: 048

REACTIONS (11)
  - BLOOD PRESSURE DIASTOLIC DECREASED [None]
  - INFECTIOUS PERITONITIS [None]
  - CARDIAC FAILURE CONGESTIVE [None]
  - ASCITES [None]
  - ACUTE RESPIRATORY DISTRESS SYNDROME [None]
  - SEPSIS [None]
  - ABDOMINAL DISTENSION [None]
  - KLEBSIELLA BACTERAEMIA [None]
  - ABDOMINAL PAIN [None]
  - LARGE INTESTINE PERFORATION [None]
  - RENAL FAILURE ACUTE [None]
